FAERS Safety Report 21311937 (Version 2)
Quarter: 2022Q3

REPORT INFORMATION
  Report Type: Report from Study
  Country: IL (occurrence: None)
  Receive Date: 20220909
  Receipt Date: 20220913
  Transmission Date: 20221027
  Serious: Yes (Other)
  Sender: FDA-Public Use
  Company Number: IL-Merck Healthcare KGaA-9349213

PATIENT
  Age: 30 Year
  Sex: Female
  Weight: 59 kg

DRUGS (2)
  1. MAVENCLAD [Suspect]
     Active Substance: CLADRIBINE
     Indication: Multiple sclerosis
     Dosage: FIRST YEAR FIRST COURSE
     Dates: start: 20220623
  2. MAVENCLAD [Suspect]
     Active Substance: CLADRIBINE
     Dosage: FIRST YEAR SECOND COURSE

REACTIONS (1)
  - Medullary thyroid cancer [Unknown]
